FAERS Safety Report 14226903 (Version 1)
Quarter: 2017Q4

REPORT INFORMATION
  Report Type: Spontaneous
  Country: IN (occurrence: IN)
  Receive Date: 20171127
  Receipt Date: 20171127
  Transmission Date: 20180321
  Serious: Yes (Other)
  Sender: FDA-Public Use
  Company Number: IN-JNJFOC-20171121756

PATIENT
  Sex: Female

DRUGS (1)
  1. RISPERIDONE. [Suspect]
     Active Substance: RISPERIDONE
     Indication: MENTAL DISORDER
     Route: 065

REACTIONS (16)
  - Somnolence [Unknown]
  - Tremor [Unknown]
  - Rash [Unknown]
  - Palpitations [Unknown]
  - Insomnia [Unknown]
  - Extrapyramidal disorder [Unknown]
  - Decreased appetite [Unknown]
  - Tardive dyskinesia [Unknown]
  - Salivary hypersecretion [Unknown]
  - Hyperthyroidism [Unknown]
  - Weight increased [Unknown]
  - Anxiety [Unknown]
  - Dry mouth [Unknown]
  - Sedation [Unknown]
  - Constipation [Unknown]
  - Akathisia [Unknown]
